FAERS Safety Report 8739228 (Version 2)
Quarter: 2012Q4

REPORT INFORMATION
  Report Type: 
  Country: US (occurrence: US)
  Receive Date: 20120823
  Receipt Date: 20121101
  Transmission Date: 20130627
  Serious: Yes (Hospitalization, Other)
  Sender: FDA-Public Use
  Company Number: US-PFIZER INC-2012202515

PATIENT
  Age: 81 Year
  Sex: Female
  Weight: 52.15 kg

DRUGS (5)
  1. REVATIO [Suspect]
     Indication: PRIMARY PULMONARY HYPERTENSION
     Dosage: 80 mg, 3x/day
     Route: 048
  2. VIAGRA [Suspect]
     Indication: PRIMARY PULMONARY HYPERTENSION
     Dosage: UNK
  3. FLOLAN [Suspect]
     Indication: PRIMARY PULMONARY HYPERTENSION
     Dosage: 5 mg, from 14 years
  4. CUBICIN [Concomitant]
     Dosage: UNK
  5. AMBRISENTAN [Concomitant]
     Indication: PRIMARY PULMONARY HYPERTENSION
     Dosage: 5 mg, UNK

REACTIONS (6)
  - Hip fracture [Recovered/Resolved]
  - Fall [Unknown]
  - Joint swelling [Unknown]
  - Diarrhoea [Unknown]
  - Drug ineffective [Unknown]
  - Off label use [Unknown]
